APPROVED DRUG PRODUCT: TAFINLAR
Active Ingredient: DABRAFENIB MESYLATE
Strength: EQ 10MG BASE
Dosage Form/Route: TABLET, FOR SUSPENSION;ORAL
Application: N217514 | Product #001
Applicant: NOVARTIS PHARMACEUTICALS CORP
Approved: Mar 16, 2023 | RLD: Yes | RS: Yes | Type: RX

PATENTS:
Patent 8703781 | Expires: Oct 15, 2030
Patent 11504333 | Expires: Jun 29, 2038
Patent 8415345 | Expires: Jan 20, 2030
Patent 7994185 | Expires: Jan 20, 2030
Patent 11504333*PED | Expires: Dec 29, 2038
Patent 8703781*PED | Expires: Apr 15, 2031
Patent 8415345*PED | Expires: Jul 20, 2030
Patent 7994185*PED | Expires: Jul 20, 2030

EXCLUSIVITY:
Code: NP | Date: Mar 16, 2026
Code: ODE-428 | Date: Mar 16, 2030
Code: PED | Date: Sep 16, 2030
Code: PED | Date: Sep 16, 2026